FAERS Safety Report 5566502-X (Version None)
Quarter: 2007Q4

REPORT INFORMATION
  Report Type: 
  Country: None (occurrence: None)
  Receive Date: 20071214
  Receipt Date: 20071206
  Transmission Date: 20080405
  Serious: Yes (Death)
  Sender: FDA-Public Use
  Company Number: TPA2007A02174

PATIENT
  Age: 46 Year
  Sex: Male

DRUGS (5)
  1. ROZEREM [Suspect]
     Dosage: PER ORAL
     Route: 048
     Dates: start: 20070919
  2. OXYCODONE HCL [Suspect]
  3. CLONAZEPAM [Suspect]
  4. AMITRIPTYLINE HCL [Suspect]
  5. TRAMADOL HCL [Suspect]

REACTIONS (2)
  - DRUG TOXICITY [None]
  - SELF-MEDICATION [None]
